FAERS Safety Report 5021272-9 (Version None)
Quarter: 2006Q2

REPORT INFORMATION
  Report Type: 
  Country: None (occurrence: None)
  Receive Date: 20060608
  Receipt Date: 20060220
  Transmission Date: 20061013
  Serious: No
  Sender: FDA-Public Use
  Company Number: BR-GLAXOSMITHKLINE-A0594674A

PATIENT
  Age: 81 Year
  Sex: Female
  Weight: 81 kg

DRUGS (6)
  1. FLIXOTIDE [Suspect]
     Indication: RALES
     Dosage: 250MCG FOUR TIMES PER DAY
     Route: 048
     Dates: start: 20060213, end: 20060215
  2. BRONCHODILATOR [Suspect]
     Indication: DRUG USE FOR UNKNOWN INDICATION
     Route: 065
  3. PANTOPRAZOLE [Concomitant]
     Dosage: 40MG PER DAY
     Dates: start: 20040101
  4. SERTRALINE [Concomitant]
     Dosage: 50MG PER DAY
     Dates: start: 20050101
  5. HYDROCHLOROTHIAZIDE [Concomitant]
     Dates: start: 19970101
  6. TIMOLOL MALEATE [Concomitant]
     Dates: start: 20060201

REACTIONS (4)
  - EYE OEDEMA [None]
  - GASTRITIS [None]
  - TACHYCARDIA [None]
  - TREMOR [None]
